FAERS Safety Report 20480212 (Version 1)
Quarter: 2022Q1

REPORT INFORMATION
  Report Type: Spontaneous
  Country: CN (occurrence: CN)
  Receive Date: 20220216
  Receipt Date: 20220216
  Transmission Date: 20220423
  Serious: Yes (Hospitalization, Other)
  Sender: FDA-Public Use
  Company Number: CN-MLMSERVICE-20220127-3342229-1

PATIENT
  Age: 30 Year
  Sex: Female

DRUGS (6)
  1. METHYLPREDNISOLONE [Suspect]
     Active Substance: METHYLPREDNISOLONE
     Indication: Autoimmune haemolytic anaemia
     Dosage: 40 MG, 1X/DAY
     Route: 042
     Dates: start: 201902
  2. METHYLPREDNISOLONE [Suspect]
     Active Substance: METHYLPREDNISOLONE
     Dosage: INCREASED
     Route: 042
     Dates: start: 2019, end: 2019
  3. METHYLPREDNISOLONE [Suspect]
     Active Substance: METHYLPREDNISOLONE
     Dosage: UNK
  4. RITUXIMAB [Suspect]
     Active Substance: RITUXIMAB
     Indication: Autoimmune haemolytic anaemia
     Dosage: UNK
  5. CYCLOSPORINE [Suspect]
     Active Substance: CYCLOSPORINE
     Indication: Autoimmune haemolytic anaemia
     Dosage: 125 MG, 2X/DAY
     Route: 048
     Dates: start: 201902
  6. CYCLOSPORINE [Suspect]
     Active Substance: CYCLOSPORINE
     Dosage: UNK

REACTIONS (6)
  - Cytomegalovirus infection [Recovering/Resolving]
  - Pneumocystis jirovecii infection [Recovering/Resolving]
  - Pneumonia [Recovering/Resolving]
  - Respiratory failure [Recovering/Resolving]
  - Varicella zoster virus infection [Recovering/Resolving]
  - Herpes virus infection [Recovering/Resolving]

NARRATIVE: CASE EVENT DATE: 20190201
